FAERS Safety Report 4850363-8 (Version None)
Quarter: 2005Q4

REPORT INFORMATION
  Report Type: 
  Country: None (occurrence: None)
  Receive Date: 20051123
  Receipt Date: 20051004
  Transmission Date: 20060501
  Serious: No
  Sender: FDA-Public Use
  Company Number: 218292

PATIENT
  Sex: Female

DRUGS (1)
  1. RAPTIVA [Suspect]
     Route: 065
     Dates: start: 20050915

REACTIONS (1)
  - HEADACHE [None]
